FAERS Safety Report 7346866-7 (Version None)
Quarter: 2011Q1

REPORT INFORMATION
  Report Type: 
  Country: None (occurrence: None)
  Receive Date: 20110302
  Receipt Date: 20110222
  Transmission Date: 20110831
  Serious: Yes (Hospitalization)
  Sender: FDA-Public Use
  Company Number: 2011SP007883

PATIENT
  Age: 25 Year
  Sex: Female

DRUGS (1)
  1. NUVARING (NUVARING /01603301/) [Suspect]
     Indication: CONTRACEPTION
     Dates: start: 20110210, end: 20110212

REACTIONS (3)
  - RESPIRATORY DISTRESS [None]
  - HYPERSENSITIVITY [None]
  - GENERALISED OEDEMA [None]
